FAERS Safety Report 8821915 (Version 6)
Quarter: 2013Q1

REPORT INFORMATION
  Report Type: Spontaneous
  Country: US (occurrence: US)
  Receive Date: 20121003
  Receipt Date: 20130109
  Transmission Date: 20140127
  Serious: Yes (Hospitalization, Disabling, Other)
  Sender: FDA-Public Use
  Company Number: US-009507513-1201USA03275

PATIENT
  Sex: 0

DRUGS (8)
  1. FOSAMAX [Suspect]
     Dosage: 10 MG, UNK
     Route: 048
     Dates: start: 20010922, end: 20011124
  2. FOSAMAX [Suspect]
     Dosage: 70 MG, UNK
     Route: 048
     Dates: start: 200112, end: 20070829
  3. FOSAMAX PLUS D [Suspect]
     Indication: OSTEOPOROSIS
     Dosage: 70MG/2800IU
     Route: 048
     Dates: start: 20070927, end: 200811
  4. HORMONES (UNSPECIFIED) [Concomitant]
     Dosage: UNK
     Dates: start: 200005, end: 200402
  5. VITAMINS (UNSPECIFIED) [Concomitant]
     Dosage: UNK
     Dates: start: 1990
  6. CALCIUM CITRATE [Concomitant]
     Indication: OSTEOPOROSIS
     Dosage: 600 MG, BID-TID
     Route: 048
     Dates: start: 1998, end: 2011
  7. CALCIUM CITRATE [Concomitant]
     Indication: OSTEOPENIA
  8. VITAMIN D (UNSPECIFIED) [Concomitant]
     Indication: OSTEOPENIA
     Dosage: 800 IU, QD

REACTIONS (106)
  - Low turnover osteopathy [Not Recovered/Not Resolved]
  - Chest pain [Unknown]
  - Toe operation [Unknown]
  - Arthroscopy [Unknown]
  - Open reduction of fracture [Unknown]
  - Arthroscopy [Unknown]
  - Transfusion [Unknown]
  - Bladder neck suspension [Unknown]
  - Haematocrit decreased [Unknown]
  - Vertebroplasty [Unknown]
  - Vertebroplasty [Unknown]
  - Phlebectomy [Unknown]
  - Colporrhaphy [Unknown]
  - Rotator cuff repair [Unknown]
  - Meniscus removal [Unknown]
  - Fall [Unknown]
  - Femur fracture [Not Recovered/Not Resolved]
  - Femur fracture [Unknown]
  - Osteonecrosis of jaw [Unknown]
  - Impaired healing [Unknown]
  - Spinal compression fracture [Unknown]
  - Vertebroplasty [Unknown]
  - Stress urinary incontinence [Unknown]
  - Hypothyroidism [Unknown]
  - Spinal osteoarthritis [Unknown]
  - Dental caries [Unknown]
  - Oral infection [Unknown]
  - Gingival infection [Unknown]
  - Kyphosis [Unknown]
  - Periodontal disease [Unknown]
  - Gingival bleeding [Unknown]
  - Debridement [Unknown]
  - Compression fracture [Unknown]
  - Skeletal injury [Unknown]
  - Rib fracture [Unknown]
  - Skeletal injury [Unknown]
  - Spinal column stenosis [Unknown]
  - Tooth disorder [Unknown]
  - Tooth extraction [Unknown]
  - Nocturia [Unknown]
  - Oral infection [Unknown]
  - Dental caries [Unknown]
  - Tooth extraction [Unknown]
  - Oral infection [Unknown]
  - Debridement [Unknown]
  - Post procedural infection [Unknown]
  - Impaired healing [Unknown]
  - Pulmonary mass [Unknown]
  - Spinal osteoarthritis [Unknown]
  - Pleural fibrosis [Unknown]
  - Lung hyperinflation [Unknown]
  - Chest discomfort [Unknown]
  - Fatigue [Unknown]
  - Pulmonary granuloma [Unknown]
  - Spinal disorder [Unknown]
  - Varicose vein [Unknown]
  - Macular degeneration [Unknown]
  - Phlebitis [Unknown]
  - Depression [Unknown]
  - Suicidal ideation [Unknown]
  - Cystocele [Unknown]
  - Rotator cuff syndrome [Unknown]
  - Stress [Unknown]
  - Cataract [Unknown]
  - Tinnitus [Unknown]
  - Weight decreased [Unknown]
  - Intervertebral disc degeneration [Unknown]
  - Intervertebral disc protrusion [Unknown]
  - Spondylolisthesis [Unknown]
  - Spinal column stenosis [Unknown]
  - Arthropathy [Unknown]
  - Polyp [Unknown]
  - Haemorrhoids [Unknown]
  - Meniscus injury [Unknown]
  - Polyarthritis [Unknown]
  - Lung disorder [Unknown]
  - Pneumonia [Unknown]
  - Emphysema [Unknown]
  - Osteoarthritis [Unknown]
  - Joint effusion [Unknown]
  - Muscle atrophy [Unknown]
  - Initial insomnia [Unknown]
  - Bursitis [Not Recovered/Not Resolved]
  - Middle insomnia [Unknown]
  - Tendonitis [Unknown]
  - Hypertonic bladder [Unknown]
  - Gastrointestinal pain [Unknown]
  - Body height decreased [Unknown]
  - Malabsorption [Unknown]
  - Bronchitis [Unknown]
  - Restrictive pulmonary disease [Unknown]
  - Cystoscopy [Unknown]
  - Malnutrition [Unknown]
  - Decreased appetite [Unknown]
  - Osteoarthritis [Unknown]
  - Lung infiltration [Unknown]
  - Impaired healing [Unknown]
  - Spinal compression fracture [Unknown]
  - Fall [Unknown]
  - Contusion [Unknown]
  - Osteomyelitis [Unknown]
  - Constipation [Unknown]
  - Oedema peripheral [Unknown]
  - Local swelling [Unknown]
  - Gastrooesophageal reflux disease [Unknown]
  - Drug ineffective [Unknown]
